FAERS Safety Report 16635026 (Version 1)
Quarter: 2019Q3

REPORT INFORMATION
  Report Type: Spontaneous
  Country: DK (occurrence: DK)
  Receive Date: 20190726
  Receipt Date: 20190726
  Transmission Date: 20191004
  Serious: Yes (Life-Threatening)
  Sender: FDA-Public Use
  Company Number: DK-009507513-1907DNK013285

PATIENT
  Age: 67 Year
  Sex: Male

DRUGS (12)
  1. GABAPENTIN. [Concomitant]
     Active Substance: GABAPENTIN
     Indication: NEURALGIA
     Dosage: 900 MILLIGRAM, QD
     Route: 048
     Dates: start: 20190131
  2. ACETAMINOPHEN. [Concomitant]
     Active Substance: ACETAMINOPHEN
     Indication: PAIN
     Dosage: 3000 MILLIGRAM, QD
     Route: 048
     Dates: start: 20171217
  3. OXYCODONE [Concomitant]
     Active Substance: OXYCODONE
     Indication: PAIN
     Dosage: 1 CAPSULE AS NEEDED A MAXIMUM OF 4 TIMES DAILY
     Route: 048
     Dates: start: 20190118
  4. PREDNISOLONE. [Concomitant]
     Active Substance: PREDNISOLONE
     Indication: ADRENOCORTICAL STEROID THERAPY
     Dosage: 50 MILLIGRAM, QD
     Route: 048
     Dates: start: 20190118
  5. ASPIRIN. [Concomitant]
     Active Substance: ASPIRIN
     Indication: THROMBOSIS PROPHYLAXIS
     Dosage: 75 MILLIGRAM, QD
     Route: 048
     Dates: start: 20180302
  6. PANTOPRAZOLE [Concomitant]
     Active Substance: PANTOPRAZOLE
     Indication: GASTRIC ULCER
     Dosage: 40 MILLIGRAM, QD
     Route: 048
  7. AMITRIPTYLINE HYDROCHLORIDE. [Concomitant]
     Active Substance: AMITRIPTYLINE HYDROCHLORIDE
     Indication: NERVOUSNESS
     Dosage: 10 MILLIGRAM, QD
     Route: 048
     Dates: start: 20190110
  8. KEYTRUDA [Suspect]
     Active Substance: PEMBROLIZUMAB
     Indication: NON-SMALL CELL LUNG CANCER METASTATIC
     Dosage: 164 MILLIGRAM, QW
     Route: 042
     Dates: start: 20171212, end: 201901
  9. POLYETHYLENE GLYCOL [Concomitant]
     Active Substance: POLYETHYLENE GLYCOLS
     Indication: CONSTIPATION
     Dosage: 1 ONE?DOSE CONTAINER AS NEEDED A MAXIMUM OF 3 TIMES DAILY
     Route: 048
     Dates: start: 20190126
  10. OXYCODONE [Concomitant]
     Active Substance: OXYCODONE
     Indication: PAIN
     Dosage: 2 TABLETS IN THE MORNING, 1 TABLET IN THE EVENING AND 2 TABLETS FOR THE NIGHT
     Route: 048
     Dates: start: 20190130
  11. LACTULOSE. [Concomitant]
     Active Substance: LACTULOSE
     Indication: CONSTIPATION
     Dosage: STRENGTH: 660 MG/ML, 30 MILLILITER, QD
     Route: 048
     Dates: start: 20190129
  12. BISACODYL. [Concomitant]
     Active Substance: BISACODYL
     Indication: CONSTIPATION
     Dosage: 10 MILLIGRAM, QD
     Route: 048
     Dates: start: 20190128

REACTIONS (2)
  - Cerebral infarction [Unknown]
  - Vasculitis [Unknown]

NARRATIVE: CASE EVENT DATE: 201901
